FAERS Safety Report 18635091 (Version 3)
Quarter: 2021Q1

REPORT INFORMATION
  Report Type: Other
  Country: US (occurrence: US)
  Receive Date: 20201218
  Receipt Date: 20210203
  Transmission Date: 20210419
  Serious: Yes (Hospitalization)
  Sender: FDA-Public Use
  Company Number: US-ROCHE-2730731

PATIENT
  Age: 70 Year
  Sex: Female
  Weight: 100.33 kg

DRUGS (28)
  1. ACTEMRA [Suspect]
     Active Substance: TOCILIZUMAB
     Indication: ARTHRITIS
     Route: 058
  2. PREDNISONE. [Concomitant]
     Active Substance: PREDNISONE
  3. ACTEMRA [Suspect]
     Active Substance: TOCILIZUMAB
  4. FUROSEMIDE. [Concomitant]
     Active Substance: FUROSEMIDE
     Dates: start: 202001
  5. PLAVIX [Concomitant]
     Active Substance: CLOPIDOGREL BISULFATE
  6. CALCIUM CARBONATE. [Concomitant]
     Active Substance: CALCIUM CARBONATE
  7. PRAVASTATIN. [Concomitant]
     Active Substance: PRAVASTATIN
  8. IMDUR [Concomitant]
     Active Substance: ISOSORBIDE MONONITRATE
  9. PANTOPRAZOLE [Concomitant]
     Active Substance: PANTOPRAZOLE
     Dates: start: 202001
  10. LEVOTHYROXINE. [Concomitant]
     Active Substance: LEVOTHYROXINE
  11. NOVOLOG [Concomitant]
     Active Substance: INSULIN ASPART
  12. ASPRIN [Concomitant]
     Active Substance: ASPIRIN
  13. FOLIC ACID. [Concomitant]
     Active Substance: FOLIC ACID
  14. ACTEMRA [Suspect]
     Active Substance: TOCILIZUMAB
  15. ACTEMRA [Suspect]
     Active Substance: TOCILIZUMAB
     Route: 058
     Dates: start: 202001
  16. CALCIUM + VITAMIN D3 [Concomitant]
     Active Substance: CALCIUM CARBONATE\CHOLECALCIFEROL
     Dosage: HALF A TABLET, TWICE A DAY
  17. IRON [Concomitant]
     Active Substance: IRON
  18. PROZAC [Concomitant]
     Active Substance: FLUOXETINE HYDROCHLORIDE
  19. ACTEMRA [Suspect]
     Active Substance: TOCILIZUMAB
     Indication: GIANT CELL ARTERITIS
     Dosage: PEN INJECTOR
     Route: 058
  20. ALENDRONATE SODIUM. [Concomitant]
     Active Substance: ALENDRONATE SODIUM
  21. POTASSIUM CHLORIDE. [Concomitant]
     Active Substance: POTASSIUM CHLORIDE
  22. HUMALOG [Concomitant]
     Active Substance: INSULIN LISPRO
  23. ALBUTEROL. [Concomitant]
     Active Substance: ALBUTEROL
  24. ACTEMRA [Suspect]
     Active Substance: TOCILIZUMAB
  25. COREG [Concomitant]
     Active Substance: CARVEDILOL
     Dates: start: 202001
  26. MAGNESIUM [MAGNESIUM OXIDE] [Concomitant]
  27. CENTRUM SILVER +50 [Concomitant]
     Active Substance: MINERALS\VITAMINS
  28. VITAMIN C [Concomitant]
     Active Substance: ASCORBIC ACID

REACTIONS (5)
  - Heart rate irregular [Unknown]
  - Haematoma [Recovered/Resolved]
  - Visual impairment [Not Recovered/Not Resolved]
  - Epistaxis [Recovered/Resolved]
  - Weight increased [Not Recovered/Not Resolved]

NARRATIVE: CASE EVENT DATE: 202001
